FAERS Safety Report 25234226 (Version 2)
Quarter: 2025Q2

REPORT INFORMATION
  Report Type: Spontaneous
  Country: JP (occurrence: JP)
  Receive Date: 20250424
  Receipt Date: 20250603
  Transmission Date: 20250717
  Serious: Yes (Hospitalization, Other)
  Sender: OTSUKA
  Company Number: JP-MMM-Otsuka-3TUBC5IA

PATIENT
  Age: 10 Decade
  Sex: Female

DRUGS (6)
  1. REXULTI [Suspect]
     Active Substance: BREXPIPRAZOLE
     Indication: Dementia Alzheimer^s type
     Route: 065
     Dates: start: 20250323
  2. REXULTI [Suspect]
     Active Substance: BREXPIPRAZOLE
     Indication: Agitation
  3. MEMANTINE HYDROCHLORIDE [Concomitant]
     Active Substance: MEMANTINE HYDROCHLORIDE
     Indication: Product used for unknown indication
     Route: 065
  4. DAYVIGO [Concomitant]
     Active Substance: LEMBOREXANT
     Indication: Product used for unknown indication
     Route: 065
  5. ELDECALCITOL [Concomitant]
     Active Substance: ELDECALCITOL
     Indication: Product used for unknown indication
     Route: 065
  6. NALOXONE HYDROCHLORIDE [Concomitant]
     Active Substance: NALOXONE HYDROCHLORIDE
     Indication: Product used for unknown indication
     Route: 065

REACTIONS (1)
  - Hyperglycaemic hyperosmolar nonketotic syndrome [Recovering/Resolving]

NARRATIVE: CASE EVENT DATE: 20250418
